FAERS Safety Report 16240314 (Version 1)
Quarter: 2019Q2

REPORT INFORMATION
  Report Type: Spontaneous
  Country: US (occurrence: US)
  Receive Date: 20190425
  Receipt Date: 20190425
  Transmission Date: 20190711
  Serious: No
  Sender: FDA-Public Use
  Company Number: US-TESARO-2019-TSO01170-US

PATIENT
  Age: 53 Year
  Sex: Female
  Weight: 64 kg

DRUGS (1)
  1. ZEJULA [Suspect]
     Active Substance: NIRAPARIB
     Indication: OVARIAN CANCER
     Dosage: 200 MG, QD, AT 8 PM W/FOOD
     Route: 048
     Dates: start: 20190304

REACTIONS (5)
  - Asthenia [Recovered/Resolved]
  - Dry mouth [Unknown]
  - Weight decreased [Unknown]
  - Decreased appetite [None]
  - Nausea [Recovered/Resolved]

NARRATIVE: CASE EVENT DATE: 201903
